FAERS Safety Report 8162982-4 (Version None)
Quarter: 2012Q1

REPORT INFORMATION
  Report Type: 
  Country: None (occurrence: None)
  Receive Date: 20120224
  Receipt Date: 20120215
  Transmission Date: 20120608
  Serious: Yes (Other)
  Sender: FDA-Public Use
  Company Number: CH-VERTEX PHARMACEUTICALS INC.-000000000000000212

PATIENT
  Age: 62 Year
  Sex: Male
  Weight: 84 kg

DRUGS (3)
  1. INCIVO (TELAPREVIR) [Suspect]
     Indication: HEPATITIS C
     Dosage: DOSAGE FORM: TABLET
     Route: 048
     Dates: start: 20111212, end: 20111219
  2. COPEGUS [Concomitant]
     Indication: HEPATITIS C
     Route: 048
     Dates: start: 20111212, end: 20111219
  3. PEGASYS [Concomitant]
     Indication: HEPATITIS C
     Route: 058
     Dates: start: 20111212, end: 20111219

REACTIONS (2)
  - RASH MACULO-PAPULAR [None]
  - PRURITUS [None]
